FAERS Safety Report 7617643-4 (Version None)
Quarter: 2011Q3

REPORT INFORMATION
  Report Type: 
  Country: None (occurrence: None)
  Receive Date: 20110718
  Receipt Date: 20110706
  Transmission Date: 20111222
  Serious: Yes (Death, Other)
  Sender: FDA-Public Use
  Company Number: US-JNJFOC-2007314444

PATIENT
  Age: 2 Month
  Sex: Male

DRUGS (5)
  1. PSEUDOEPHEDRINE HCL [Suspect]
     Indication: PRODUCT USED FOR UNKNOWN INDICATION
     Dosage: DAILY DOSE TEXT: UNKNOWN
     Route: 065
  2. PSEUDOEPHEDRINE HCL [Suspect]
     Route: 065
  3. METOCLOPRAMIDE [Concomitant]
     Dosage: DAILY DOSE TEXT: UNKNOWN
     Route: 065
  4. DEXTROMETHORPHAN HYDROBROMIDE [Suspect]
     Indication: PRODUCT USED FOR UNKNOWN INDICATION
     Dosage: DAILY DOSE TEXT: UNKNOWN
     Route: 065
  5. MULTI-VITAMINS [Concomitant]
     Dosage: DAILY DOSE TEXT: UNKNOWN
     Route: 065

REACTIONS (2)
  - HYPOXIC-ISCHAEMIC ENCEPHALOPATHY [None]
  - DRUG SCREEN POSITIVE [None]
